FAERS Safety Report 6755557-2 (Version None)
Quarter: 2010Q2

REPORT INFORMATION
  Report Type: 
  Country: None (occurrence: None)
  Receive Date: 20100602
  Receipt Date: 20100518
  Transmission Date: 20101027
  Serious: Yes (Other)
  Sender: FDA-Public Use
  Company Number: 2009SP040364

PATIENT
  Age: 51 Year
  Sex: Female

DRUGS (14)
  1. MIRTAZAPINE [Suspect]
     Indication: DEPRESSIVE SYMPTOM
     Dosage: 3.75 MG; HS; PO
     Route: 048
     Dates: start: 20091201, end: 20091204
  2. UNSPECIFIED DRUG [Concomitant]
  3. VALPROATE SODIUM [Concomitant]
  4. ZOLPIDEM TARTRATE [Concomitant]
  5. QUAZEPAM [Concomitant]
  6. ETIZOLAM [Concomitant]
  7. TRIAZOLAM [Concomitant]
  8. REBAMIPIDE [Concomitant]
  9. SENNOSIDE [Concomitant]
  10. AMLODIPINE BESYLATE [Concomitant]
  11. LOXOPROFEN SODIUM HYDRATE [Concomitant]
  12. FLUVOXAMINE MALEATE [Concomitant]
  13. TOLEDOMIN [Concomitant]
  14. AMOXAN [Concomitant]

REACTIONS (13)
  - AGGRESSION [None]
  - CONDITION AGGRAVATED [None]
  - CRYING [None]
  - DEPRESSED MOOD [None]
  - DRUG HYPERSENSITIVITY [None]
  - FATIGUE [None]
  - FEELING JITTERY [None]
  - IMPULSIVE BEHAVIOUR [None]
  - IRRITABILITY [None]
  - NO THERAPEUTIC RESPONSE [None]
  - SELF INJURIOUS BEHAVIOUR [None]
  - TINNITUS [None]
  - UNDERDOSE [None]
